FAERS Safety Report 6692005-5 (Version None)
Quarter: 2010Q2

REPORT INFORMATION
  Report Type: 
  Country: None (occurrence: None)
  Receive Date: 20100422
  Receipt Date: 20100414
  Transmission Date: 20101027
  Serious: No
  Sender: FDA-Public Use
  Company Number: BR-ROCHE-697735

PATIENT
  Sex: Male

DRUGS (2)
  1. ROACUTAN [Suspect]
     Indication: ACNE
     Dates: start: 20060901, end: 20070901
  2. ROACUTAN [Suspect]

REACTIONS (1)
  - JAUNDICE [None]
